FAERS Safety Report 5230267-1 (Version None)
Quarter: 2007Q1

REPORT INFORMATION
  Report Type: 
  Country: None (occurrence: None)
  Receive Date: 20070206
  Receipt Date: 20061103
  Transmission Date: 20070707
  Serious: No
  Sender: FDA-Public Use
  Company Number: US-GLAXOSMITHKLINE-A0626155A

PATIENT
  Age: 51 Year
  Sex: Male

DRUGS (4)
  1. PAXIL CR [Suspect]
     Indication: MAJOR DEPRESSION
     Dosage: 12.5MG PER DAY
     Route: 048
     Dates: start: 20060601, end: 20061103
  2. LIPITOR [Concomitant]
  3. WELLBUTRIN XL [Concomitant]
  4. NORVASC [Concomitant]

REACTIONS (2)
  - DRUG INEFFECTIVE [None]
  - MALABSORPTION [None]
